FAERS Safety Report 6631123-4 (Version None)
Quarter: 2010Q1

REPORT INFORMATION
  Report Type: 
  Country: None (occurrence: None)
  Receive Date: 20100309
  Receipt Date: 20100226
  Transmission Date: 20100710
  Serious: Yes (Death, Hospitalization)
  Sender: FDA-Public Use
  Company Number: 233265K08USA

PATIENT
  Age: 48 Year
  Sex: Female

DRUGS (6)
  1. REBIF [Suspect]
     Indication: MULTIPLE SCLEROSIS
     Dosage: 8.8 MCG, 3 IN 1 WEEKS, SUBCUTANEOUS
     Route: 058
     Dates: start: 20081021, end: 20081023
  2. SYNTHROID [Concomitant]
  3. VICODIN [Concomitant]
  4. IBUPROFEN [Concomitant]
  5. GABAPENTIN [Concomitant]
  6. LISINOPRIL [Concomitant]

REACTIONS (2)
  - ACUTE HEPATIC FAILURE [None]
  - MULTI-ORGAN FAILURE [None]
